FAERS Safety Report 24391709 (Version 1)
Quarter: 2024Q4

REPORT INFORMATION
  Report Type: Report from Study
  Country: US (occurrence: US)
  Receive Date: 20241003
  Receipt Date: 20241003
  Transmission Date: 20250115
  Serious: Yes (Other)
  Sender: GILEAD
  Company Number: US-GILEAD-2024-0689269

PATIENT
  Age: 14 Year
  Sex: Female

DRUGS (3)
  1. AZTREONAM LYSINE [Suspect]
     Active Substance: AZTREONAM LYSINE
     Indication: Cystic fibrosis
     Dosage: INHALE 1 VIAL VIA NEBULIZER 3X DAILY FOR 28 DAYS ON FOLLOWED BY 28 DAYS OFF.
     Route: 055
     Dates: start: 20240227
  2. AZTREONAM LYSINE [Suspect]
     Active Substance: AZTREONAM LYSINE
     Dosage: INHALE 1 VIAL VIA NEBULIZER 3X DAILY FOR 28 DAYS ON FOLLOWED BY 28 DAYS OFF.
     Route: 055
     Dates: start: 20240227
  3. CIPROFLAXINA HC LAZAR [Concomitant]

REACTIONS (1)
  - Pneumonia [Not Recovered/Not Resolved]

NARRATIVE: CASE EVENT DATE: 20240926
